FAERS Safety Report 6385127-X (Version None)
Quarter: 2009Q4

REPORT INFORMATION
  Report Type: 
  Country: None (occurrence: None)
  Receive Date: 20091002
  Receipt Date: 20090929
  Transmission Date: 20100525
  Serious: Yes (Hospitalization)
  Sender: FDA-Public Use
  Company Number: IE-BRISTOL-MYERS SQUIBB COMPANY-14360895

PATIENT

DRUGS (2)
  1. ERBITUX [Suspect]
     Indication: COLORECTAL CANCER
     Route: 041
  2. IRINOTECAN HCL [Suspect]
     Indication: COLORECTAL CANCER

REACTIONS (1)
  - LYMPHADENOPATHY MEDIASTINAL [None]
